FAERS Safety Report 4762845-8 (Version None)
Quarter: 2005Q3

REPORT INFORMATION
  Report Type: 
  Country: None (occurrence: None)
  Receive Date: 20050907
  Receipt Date: 20050826
  Transmission Date: 20060218
  Serious: Yes (Hospitalization)
  Sender: FDA-Public Use
  Company Number: PHFR2005GB02872

PATIENT
  Age: 62 Year
  Sex: Male

DRUGS (10)
  1. WARFARIN (NGX) [Suspect]
     Indication: ATRIAL FIBRILLATION
     Dosage: UNK, UNK
     Route: 048
     Dates: end: 20050804
  2. ACETYLSALICYLIC ACID SRT [Suspect]
     Indication: MYOCARDIAL INFARCTION
     Dosage: 75 MG, OD
     Route: 048
     Dates: end: 20050804
  3. GTN [Concomitant]
     Indication: MYOCARDIAL ISCHAEMIA
     Dosage: 1 PUFF
     Route: 060
  4. CANDESARTAN [Concomitant]
     Indication: MYOCARDIAL ISCHAEMIA
     Dosage: 8 MG, QD
     Route: 048
  5. NICORANDIL [Concomitant]
     Indication: MYOCARDIAL ISCHAEMIA
     Dosage: 20 MG, BID
     Route: 048
  6. ISOSORBIDE MONONITRATE [Concomitant]
     Indication: MYOCARDIAL ISCHAEMIA
     Dosage: 25 MG, BID
     Route: 048
  7. ADIZEM-XL [Concomitant]
     Indication: MYOCARDIAL ISCHAEMIA
     Dosage: 200 MG, QD
     Route: 048
  8. DIGOXIN [Concomitant]
     Indication: ATRIAL FIBRILLATION
     Dosage: 125 UG, QD
     Route: 048
  9. SIMVASTATIN [Concomitant]
     Indication: MYOCARDIAL ISCHAEMIA
     Dosage: 20 MG, QD
     Route: 048
  10. DICLOFENAC [Suspect]
     Indication: PAIN
     Dosage: 50 MG, TID
     Route: 048
     Dates: end: 20050804

REACTIONS (8)
  - BLOOD PRESSURE ABNORMAL [None]
  - BLOOD UREA ABNORMAL [None]
  - CHEST DISCOMFORT [None]
  - CIRCULATORY COLLAPSE [None]
  - DYSPNOEA [None]
  - GASTRIC ULCER [None]
  - GASTRITIS EROSIVE [None]
  - HEART RATE INCREASED [None]
